FAERS Safety Report 5021183-9 (Version None)
Quarter: 2006Q2

REPORT INFORMATION
  Report Type: 
  Country: None (occurrence: None)
  Receive Date: 20060425
  Receipt Date: 20050608
  Transmission Date: 20061013
  Serious: Yes (Disabling)
  Sender: FDA-Public Use
  Company Number: WAES 0506USA01298

PATIENT
  Age: 11 Year
  Sex: Male
  Weight: 49.8957 kg

DRUGS (1)
  1. SINGULAIR [Suspect]
     Indication: RHINITIS ALLERGIC
     Dosage: 5 MG DAILY PO
     Route: 048
     Dates: start: 20050501

REACTIONS (2)
  - MYALGIA [None]
  - SHOULDER PAIN [None]
